FAERS Safety Report 23401152 (Version 1)
Quarter: 2024Q1

REPORT INFORMATION
  Report Type: Spontaneous
  Country: US (occurrence: US)
  Receive Date: 20240115
  Receipt Date: 20240115
  Transmission Date: 20240409
  Serious: Yes (Other)
  Sender: FDA-Public Use
  Company Number: US-AMGEN-USASP2024003985

PATIENT
  Sex: Female
  Weight: 45.351 kg

DRUGS (1)
  1. PROCRIT [Suspect]
     Active Substance: ERYTHROPOIETIN
     Indication: Renal disorder
     Dosage: UNK, Q2WK (10,000 UNITS OR 12,000 UNITS)
     Route: 065

REACTIONS (13)
  - Blood pressure increased [Unknown]
  - Blood disorder [Unknown]
  - Haemorrhage [Unknown]
  - Peripheral swelling [Unknown]
  - Contusion [Unknown]
  - Fatigue [Unknown]
  - Diarrhoea [Unknown]
  - Urticaria [Unknown]
  - Adverse drug reaction [Unknown]
  - Limb discomfort [Unknown]
  - Weight decreased [Recovering/Resolving]
  - Wound [Unknown]
  - Pustule [Unknown]
